FAERS Safety Report 8228840-1 (Version None)
Quarter: 2012Q1

REPORT INFORMATION
  Report Type: 
  Country: None (occurrence: None)
  Receive Date: 20120322
  Receipt Date: 20120316
  Transmission Date: 20120608
  Serious: Yes (Hospitalization)
  Sender: FDA-Public Use
  Company Number: JP-GLAXOSMITHKLINE-B0789071A

PATIENT
  Sex: Male

DRUGS (14)
  1. ENALAPRIL MALEATE [Concomitant]
     Route: 048
  2. CARVEDILOL [Concomitant]
     Route: 048
  3. ALLOPURINOL [Concomitant]
     Route: 048
  4. FAMOTIDINE [Concomitant]
     Route: 065
  5. VALTREX [Suspect]
     Indication: HERPES ZOSTER
     Dosage: 3000MG PER DAY
     Route: 048
     Dates: start: 20120309, end: 20120312
  6. FUROSEMIDE [Concomitant]
     Route: 048
  7. ANPLAG [Concomitant]
     Route: 048
  8. ASPIRIN [Concomitant]
     Route: 048
  9. METHYCOBAL [Concomitant]
     Route: 065
  10. URINORM [Concomitant]
     Route: 048
  11. CALBLOCK [Concomitant]
     Route: 048
  12. AZUNOL [Concomitant]
     Route: 062
  13. PLAVIX [Concomitant]
     Route: 048
  14. CRESTOR [Concomitant]
     Route: 048

REACTIONS (3)
  - HALLUCINATION, VISUAL [None]
  - ENCEPHALITIS HERPES [None]
  - RENAL FAILURE ACUTE [None]
